FAERS Safety Report 6638304-4 (Version None)
Quarter: 2010Q1

REPORT INFORMATION
  Report Type: 
  Country: None (occurrence: None)
  Receive Date: 20100317
  Receipt Date: 20100311
  Transmission Date: 20100710
  Serious: Yes (Hospitalization)
  Sender: FDA-Public Use
  Company Number: DE-ROCHE-691109

PATIENT
  Sex: Female
  Weight: 90 kg

DRUGS (2)
  1. TRASTUZUMAB [Suspect]
     Route: 065
     Dates: start: 20080609, end: 20081112
  2. TRASTUZUMAB [Suspect]
     Route: 065
     Dates: start: 20081113, end: 20090813

REACTIONS (1)
  - CONVULSION [None]
